FAERS Safety Report 5105213-1 (Version None)
Quarter: 2006Q3

REPORT INFORMATION
  Report Type: 
  Country: None (occurrence: None)
  Receive Date: 20060911
  Receipt Date: 20060901
  Transmission Date: 20061208
  Serious: Yes (Other)
  Sender: FDA-Public Use
  Company Number: 147338USA

PATIENT
  Sex: Female

DRUGS (19)
  1. AMIODARONE HCL [Suspect]
     Dates: start: 20060817
  2. ENOXAPARIN SODIUM [Suspect]
     Dosage: 40 MILLIGRAM DAILY ORAL
     Route: 048
     Dates: end: 20060817
  3. FUROSEMIDE [Concomitant]
  4. NPH INSULIN [Concomitant]
  5. MAGNESIUM OXIDE [Concomitant]
  6. SOLU-MEDROL [Concomitant]
  7. MORPHINE [Concomitant]
  8. NITROGLYCERIN [Concomitant]
  9. PROTONIX [Concomitant]
  10. PAROXETINE HCL [Concomitant]
  11. POTASSIUM CHLORIDE [Concomitant]
  12. PROMETHAZINE [Concomitant]
  13. LISINOPRIL [Concomitant]
  14. CEFTAZIDIME [Concomitant]
  15. AZITHROMYCIN [Concomitant]
  16. CLONIDINE [Concomitant]
  17. VITAMIN B-12 [Concomitant]
  18. DIGOXIN [Concomitant]
  19. DILTIAZEM HCL [Concomitant]

REACTIONS (1)
  - ACTIVATED PARTIAL THROMBOPLASTIN TIME PROLONGED [None]
